FAERS Safety Report 7170742-6 (Version None)
Quarter: 2010Q4

REPORT INFORMATION
  Report Type: 
  Country: None (occurrence: None)
  Receive Date: 20101217
  Receipt Date: 20101206
  Transmission Date: 20110411
  Serious: Yes (Life-Threatening, Hospitalization)
  Sender: FDA-Public Use
  Company Number: US-JNJFOC-20100404265

PATIENT
  Sex: Male
  Weight: 52.8 kg

DRUGS (14)
  1. INFLIXIMAB [Suspect]
     Indication: CROHN'S DISEASE
     Route: 042
  2. METHOTREXATE [Suspect]
     Indication: CROHN'S DISEASE
  3. HUMIRA [Suspect]
     Indication: CROHN'S DISEASE
  4. PREDNISONE [Suspect]
     Indication: CROHN'S DISEASE
  5. CALCIUM CARBONATE [Concomitant]
  6. IRON [Concomitant]
  7. FOLIC ACID [Concomitant]
  8. CHOLECALCIFEROL [Concomitant]
  9. PEPTAMEN [Concomitant]
  10. RIFAXIMIN [Concomitant]
  11. IMODIUM [Concomitant]
  12. MORPHINE [Concomitant]
  13. COTRIM [Concomitant]
  14. MIRALAX [Concomitant]

REACTIONS (2)
  - ACUTE MONOCYTIC LEUKAEMIA [None]
  - TRANSFUSION REACTION [None]
